FAERS Safety Report 17308901 (Version 1)
Quarter: 2020Q1

REPORT INFORMATION
  Report Type: Spontaneous
  Country: US (occurrence: US)
  Receive Date: 20200123
  Receipt Date: 20200123
  Transmission Date: 20200409
  Serious: Yes (Life-Threatening)
  Sender: FDA-Public Use
  Company Number: None

PATIENT
  Age: 32 Year
  Sex: Male
  Weight: 65.7 kg

DRUGS (4)
  1. TEGRETOL 100MG XR, TWICE DAILY [Concomitant]
     Dates: start: 20191130, end: 20200123
  2. NALTREXONE, COMPOUNDED 1MG [Concomitant]
     Dates: start: 20191201, end: 20200123
  3. BUPRENORPHINE. [Suspect]
     Active Substance: BUPRENORPHINE
     Indication: DRUG DEPENDENCE
     Route: 060
     Dates: start: 20200116, end: 20200122
  4. DIAZEPAM, 40MG DAILY TAPER [Concomitant]
     Dates: start: 20200101, end: 20200123

REACTIONS (2)
  - Drug ineffective [None]
  - Withdrawal syndrome [None]

NARRATIVE: CASE EVENT DATE: 20200122
